FAERS Safety Report 20490507 (Version 1)
Quarter: 2022Q1

REPORT INFORMATION
  Report Type: Spontaneous
  Country: US (occurrence: US)
  Receive Date: 20220218
  Receipt Date: 20220218
  Transmission Date: 20220423
  Serious: Yes (Hospitalization, Other)
  Sender: FDA-Public Use
  Company Number: US-GILEAD-2022-0570299

PATIENT
  Sex: Male

DRUGS (1)
  1. YESCARTA [Suspect]
     Active Substance: AXICABTAGENE CILOLEUCEL
     Indication: Diffuse large B-cell lymphoma
     Dosage: UNK
     Route: 042
     Dates: start: 20210707

REACTIONS (6)
  - Mobility decreased [Unknown]
  - Functional gastrointestinal disorder [Unknown]
  - Hallucination [Unknown]
  - Neurotoxicity [Unknown]
  - Speech disorder [Unknown]
  - Cytokine release syndrome [Unknown]
